FAERS Safety Report 25763784 (Version 1)
Quarter: 2025Q3

REPORT INFORMATION
  Report Type: Spontaneous
  Country: US (occurrence: US)
  Receive Date: 20250905
  Receipt Date: 20250905
  Transmission Date: 20251021
  Serious: No
  Sender: DOMPE FARMACEUTICI
  Company Number: US-FARMAPROD-202411-4051

PATIENT
  Sex: Female
  Weight: 67.49 kg

DRUGS (12)
  1. OXERVATE [Suspect]
     Active Substance: CENEGERMIN-BKBJ
     Indication: Neurotrophic keratopathy
     Route: 047
     Dates: start: 20241112
  2. OXERVATE [Suspect]
     Active Substance: CENEGERMIN-BKBJ
  3. SPIRONOLACTONE [Concomitant]
     Active Substance: SPIRONOLACTONE
  4. ATORVASTATIN CALCIUM [Concomitant]
     Active Substance: ATORVASTATIN CALCIUM
  5. LISINOPRIL [Concomitant]
     Active Substance: LISINOPRIL
  6. MEMANTINE [Concomitant]
     Active Substance: MEMANTINE
  7. JANUVIA [Concomitant]
     Active Substance: SITAGLIPTIN PHOSPHATE
  8. ROSIN [Concomitant]
     Active Substance: ROSIN
  9. NAMENDA XR [Concomitant]
     Active Substance: MEMANTINE HYDROCHLORIDE
  10. LISINOPRIL [Concomitant]
     Active Substance: LISINOPRIL
  11. ATORVASTATIN CALCIUM [Concomitant]
     Active Substance: ATORVASTATIN CALCIUM
  12. REFRESH TEARS [Concomitant]
     Active Substance: CARBOXYMETHYLCELLULOSE SODIUM

REACTIONS (8)
  - Eyelid pain [Not Recovered/Not Resolved]
  - Dry eye [Unknown]
  - Herpes zoster [Unknown]
  - Product dose omission issue [Unknown]
  - Eye pain [Recovering/Resolving]
  - Photophobia [Unknown]
  - Product administration error [Unknown]
  - Underdose [Unknown]
